FAERS Safety Report 18203069 (Version 1)
Quarter: 2020Q3

REPORT INFORMATION
  Report Type: Spontaneous
  Country: NL (occurrence: NL)
  Receive Date: 20200827
  Receipt Date: 20200827
  Transmission Date: 20201103
  Serious: Yes (Other)
  Sender: FDA-Public Use
  Company Number: NL-FRESENIUS KABI-FK202008648

PATIENT

DRUGS (3)
  1. TECHNETIUM TC 99M ALBUMIN [Concomitant]
     Indication: DRUG THERAPY
     Dosage: UNKNOWN
     Route: 065
  2. MELPHALAN (MANUFACTURER UNKNOWN) [Suspect]
     Active Substance: MELPHALAN
     Indication: KAPOSI^S SARCOMA
     Dosage: UNKNOWN
     Route: 065
  3. TUMOR NECROSIS FACTOR?ALPHA [Suspect]
     Active Substance: TUMOR NECROSIS FACTOR .ALPHA. HUMAN (SOLUBLE FORM)
     Indication: KAPOSI^S SARCOMA
     Dosage: UNKNOWN
     Route: 065

REACTIONS (1)
  - Systemic inflammatory response syndrome [Recovered/Resolved]
